FAERS Safety Report 21817132 (Version 4)
Quarter: 2024Q2

REPORT INFORMATION
  Report Type: Spontaneous
  Country: US (occurrence: US)
  Receive Date: 20230104
  Receipt Date: 20240610
  Transmission Date: 20240715
  Serious: Yes (Other)
  Sender: FDA-Public Use
  Company Number: US-PFIZER INC-PV202300000476

PATIENT
  Age: 68 Year
  Sex: Female

DRUGS (1)
  1. IBRANCE [Suspect]
     Active Substance: PALBOCICLIB
     Indication: Breast cancer female
     Dosage: 1 TABLET, EVERY DAY FOR 3 WEEKS, TAKE WEEK OFF

REACTIONS (4)
  - Spinal fracture [Unknown]
  - Dysphonia [Unknown]
  - Product administration error [Unknown]
  - Product storage error [Unknown]
